FAERS Safety Report 5596299-9 (Version None)
Quarter: 2008Q1

REPORT INFORMATION
  Report Type: 
  Country: None (occurrence: None)
  Receive Date: 20080118
  Receipt Date: 20080116
  Transmission Date: 20080703
  Serious: Yes (Life-Threatening, Hospitalization)
  Sender: FDA-Public Use
  Company Number: US-GILEAD-2008-0015009

PATIENT
  Sex: Male

DRUGS (1)
  1. ATRIPLA [Suspect]

REACTIONS (1)
  - HEPATIC FAILURE [None]
